FAERS Safety Report 23984002 (Version 2)
Quarter: 2024Q3

REPORT INFORMATION
  Report Type: Report from Study
  Country: DE (occurrence: DE)
  Receive Date: 20240618
  Receipt Date: 20240709
  Transmission Date: 20241017
  Serious: Yes (Hospitalization, Other)
  Sender: PFIZER
  Company Number: DE-BRISTOL-MYERS SQUIBB COMPANY-2024-066697

PATIENT
  Age: 53 Year
  Sex: Male

DRUGS (28)
  1. PEMETREXED [Suspect]
     Active Substance: PEMETREXED
     Indication: Non-small cell lung cancer
     Dosage: 1025 MG, EVERY 3 WEEKS
     Dates: start: 20240313
  2. PEMETREXED [Suspect]
     Active Substance: PEMETREXED
     Dosage: 1025 MG, EVERY 3 WEEKS
     Dates: start: 20240409
  3. YERVOY [Suspect]
     Active Substance: IPILIMUMAB
     Indication: Non-small cell lung cancer
     Dosage: 88 MG, EVERY 3 WEEKS
     Route: 042
     Dates: start: 20240313, end: 20240409
  4. CISPLATIN [Suspect]
     Active Substance: CISPLATIN
     Indication: Non-small cell lung cancer
     Dosage: 155 MG, EVERY 3 WEEKS
     Route: 042
     Dates: start: 20240313, end: 20240313
  5. OPDIVO [Suspect]
     Active Substance: NIVOLUMAB
     Indication: Non-small cell lung cancer
     Dosage: 360 MG, EVERY 3 WEEKS
     Route: 042
     Dates: start: 20240313, end: 20240409
  6. CARBOPLATIN [Suspect]
     Active Substance: CARBOPLATIN
     Indication: Non-small cell lung cancer
     Dosage: AUC5
     Dates: start: 20240409
  7. DEXAMETHASONE [Suspect]
     Active Substance: DEXAMETHASONE
     Indication: Product used for unknown indication
  8. ELIDEL [Concomitant]
     Active Substance: PIMECROLIMUS
     Indication: Product used for unknown indication
     Dosage: 1 %
  9. KEPPRA [Concomitant]
     Active Substance: LEVETIRACETAM
     Indication: Product used for unknown indication
     Dosage: UNK
     Dates: start: 20240328
  10. HYDROXYCHLOROQUINE [Concomitant]
     Active Substance: HYDROXYCHLOROQUINE
     Indication: Product used for unknown indication
     Dosage: UNK
  11. DEXAMETHASONE [Concomitant]
     Active Substance: DEXAMETHASONE
     Indication: Product used for unknown indication
     Dosage: UNK
     Dates: start: 20240411
  12. OLMESARTAN [Concomitant]
     Active Substance: OLMESARTAN
     Indication: Product used for unknown indication
     Dosage: UNK
     Dates: start: 20220101, end: 20240513
  13. AMPHOTERICIN B [Concomitant]
     Active Substance: AMPHOTERICIN B
     Indication: Product used for unknown indication
     Dosage: 4-6 DAILY
     Dates: start: 20240416
  14. MCP [Concomitant]
     Active Substance: METOCLOPRAMIDE HYDROCHLORIDE
     Indication: Prophylaxis
     Dosage: IF NEEDED
     Dates: start: 20240313
  15. CHOLECALCIFEROL [Concomitant]
     Active Substance: CHOLECALCIFEROL
     Indication: Prophylaxis
     Dosage: 4000
  16. CHOLECALCIFEROL [Concomitant]
     Active Substance: CHOLECALCIFEROL
     Dosage: 4000
  17. INSULIN GLARGINE [Concomitant]
     Active Substance: INSULIN GLARGINE
     Indication: Product used for unknown indication
     Dosage: 30I.E. IN THE EVENING
  18. INSULIN GLARGINE [Concomitant]
     Active Substance: INSULIN GLARGINE
     Dosage: 30I.E. IN THE EVENING
  19. PANTOPRAZOLE [Concomitant]
     Active Substance: PANTOPRAZOLE
     Indication: Prophylaxis
     Dosage: UNK
     Dates: start: 20240313, end: 20240528
  20. VITAMIN B12 [Concomitant]
     Active Substance: CYANOCOBALAMIN
     Indication: Prophylaxis
     Dosage: ON THE DAY OF PEMETREXED ADMINISTRATION
     Dates: start: 20240313
  21. INSULIN ASPART [Concomitant]
     Active Substance: INSULIN ASPART
     Indication: Product used for unknown indication
     Dosage: ACCORDING TO SCHEME
  22. INSULIN ASPART [Concomitant]
     Active Substance: INSULIN ASPART
     Dosage: ACCORDING TO SCHEME
  23. FOLIC ACID [Concomitant]
     Active Substance: FOLIC ACID
     Indication: Prophylaxis
     Dosage: UNK
     Dates: start: 20240313
  24. SODIUM CHLORIDE [Concomitant]
     Active Substance: SODIUM CHLORIDE
     Indication: Prophylaxis
     Dosage: ORAL INTAKE RESTRICTED, 1 L NACL 0,9% RECEIVED SUPPORTIVELY
     Dates: start: 20240422
  25. ALLOPURINOL [Concomitant]
     Active Substance: ALLOPURINOL
     Indication: Product used for unknown indication
     Dosage: UNK
     Dates: start: 20240426
  26. AMOXICILLIN\CLAVULANIC ACID [Concomitant]
     Active Substance: AMOXICILLIN\CLAVULANIC ACID
     Dosage: UNK
     Dates: start: 20240403
  27. PREDNISOLONE [Concomitant]
     Active Substance: PREDNISOLONE
     Indication: Product used for unknown indication
     Dosage: UNK
     Dates: start: 20240426, end: 20240428
  28. PREDNISOLONE [Concomitant]
     Active Substance: PREDNISOLONE
     Dosage: UNK
     Dates: start: 20240513, end: 20240528

REACTIONS (11)
  - Acute kidney injury [Unknown]
  - Nephritis [Unknown]
  - Delirium [Recovered/Resolved]
  - Anaemia [Not Recovered/Not Resolved]
  - Pulmonary sepsis [Unknown]
  - Blood uric acid increased [Recovered/Resolved]
  - Stomatitis [Not Recovered/Not Resolved]
  - Bronchitis [Unknown]
  - Alanine aminotransferase increased [Recovered/Resolved]
  - Rash [Unknown]
  - Aspartate aminotransferase increased [Recovered/Resolved]

NARRATIVE: CASE EVENT DATE: 20240319
